FAERS Safety Report 9697950 (Version 1)
Quarter: 2013Q4

REPORT INFORMATION
  Report Type: Spontaneous
  Country: FR (occurrence: FR)
  Receive Date: 20131120
  Receipt Date: 20131120
  Transmission Date: 20140711
  Serious: Yes (Other)
  Sender: FDA-Public Use
  Company Number: FR-ASTRAZENECA-2013SE83793

PATIENT
  Age: 16018 Day
  Sex: Female

DRUGS (8)
  1. XEROQUEL [Suspect]
     Indication: SCHIZOAFFECTIVE DISORDER
     Route: 048
  2. HALDOL [Suspect]
     Indication: PERSECUTORY DELUSION
     Route: 048
     Dates: start: 20130829
  3. LEPTICUR [Suspect]
     Indication: DYSKINESIA
     Route: 048
     Dates: start: 20130828
  4. LEVOTHYROX [Concomitant]
     Indication: HYPOTHYROIDISM
  5. VALIUM [Concomitant]
     Indication: ANXIETY
     Dosage: 15 DROPS 3 TIMES PER DAY AND 20 DROPS IF ANXIETY AND 30 DROPS IF AGITATION
  6. VALIUM [Concomitant]
     Indication: AGITATION
     Dosage: 15 DROPS 3 TIMES PER DAY AND 20 DROPS IF ANXIETY AND 30 DROPS IF AGITATION
  7. HOMEOPATHY [Concomitant]
  8. LOXAPAC [Concomitant]
     Indication: AGITATION
     Dosage: 25 MG/M, 50 DROPS PER DAY
     Dates: start: 20130821, end: 20130829

REACTIONS (1)
  - Urinary retention [Recovered/Resolved]
